FAERS Safety Report 7287815-X (Version None)
Quarter: 2011Q1

REPORT INFORMATION
  Report Type: 
  Country: None (occurrence: None)
  Receive Date: 20110208
  Receipt Date: 20110208
  Transmission Date: 20110831
  Serious: No
  Sender: FDA-Public Use
  Company Number: None

PATIENT
  Age: 31 Year
  Sex: Female
  Weight: 61.2356 kg

DRUGS (2)
  1. XYREM [Suspect]
     Indication: NARCOLEPSY
     Dosage: 4.5 TWICE PO
     Route: 048
     Dates: start: 20091005, end: 20110204
  2. XYREM [Suspect]
     Indication: CATAPLEXY
     Dosage: 4.5 TWICE PO
     Route: 048
     Dates: start: 20091005, end: 20110204

REACTIONS (4)
  - PRODUCT QUALITY ISSUE [None]
  - FEAR [None]
  - DRUG EFFECT DECREASED [None]
  - ECONOMIC PROBLEM [None]
